FAERS Safety Report 25826584 (Version 2)
Quarter: 2025Q4

REPORT INFORMATION
  Report Type: Spontaneous
  Country: US (occurrence: US)
  Receive Date: 20250920
  Receipt Date: 20251003
  Transmission Date: 20260119
  Serious: Yes (Other)
  Sender: AUROBINDO
  Company Number: US-AUROBINDO-AUR-APL-2025-047260

PATIENT
  Age: 70 Year
  Sex: Male

DRUGS (2)
  1. KETOROLAC TROMETHAMINE [Suspect]
     Active Substance: KETOROLAC TROMETHAMINE
     Indication: Ulcerative keratitis
     Dosage: 0.5 PERCENT, TWO TIMES A DAY
     Route: 061
  2. PREDNISOLONE [Concomitant]
     Active Substance: PREDNISOLONE
     Indication: Injury
     Dosage: 1 PERCENT, TWO TIMES A DAY
     Route: 065

REACTIONS (1)
  - Ulcerative keratitis [Recovered/Resolved]
